FAERS Safety Report 6655661-3 (Version None)
Quarter: 2010Q1

REPORT INFORMATION
  Report Type: 
  Country: None (occurrence: None)
  Receive Date: 20100329
  Receipt Date: 20100319
  Transmission Date: 20100710
  Serious: No
  Sender: FDA-Public Use
  Company Number: DE-GENZYME-FABR-1001234

PATIENT
  Sex: Male
  Weight: 75 kg

DRUGS (4)
  1. FABRAZYME [Suspect]
     Indication: FABRY'S DISEASE
     Dosage: 25 MG, Q2W
     Route: 042
     Dates: start: 20100101
  2. FABRAZYME [Suspect]
     Dosage: 0.3 MG/KG, Q3W
     Route: 042
     Dates: start: 20091123
  3. FABRAZYME [Suspect]
     Dosage: 1 MG/KG, Q2W
     Route: 042
     Dates: start: 20071101
  4. SPIRIVA [Concomitant]
     Indication: CHRONIC OBSTRUCTIVE PULMONARY DISEASE
     Dosage: 18 MCG, QD

REACTIONS (1)
  - NEURALGIA [None]
